FAERS Safety Report 6856662-2 (Version None)
Quarter: 2010Q3

REPORT INFORMATION
  Report Type: 
  Country: None (occurrence: None)
  Receive Date: 20100716
  Receipt Date: 20100716
  Transmission Date: 20110219
  Serious: Yes (Other)
  Sender: FDA-Public Use
  Company Number: None

PATIENT
  Sex: Female
  Weight: 68.0396 kg

DRUGS (2)
  1. ALENDRONATE SODIUM [Suspect]
     Indication: OSTEOPENIA
     Dosage: 70 MG WEEKLY BY MOUTH
     Route: 048
     Dates: start: 20090701
  2. ALENDRONATE SODIUM [Suspect]
     Indication: OSTEOPENIA
     Dosage: 70 MG WEEKLY BY MOUTH
     Route: 048
     Dates: start: 20100501

REACTIONS (8)
  - ABDOMINAL PAIN UPPER [None]
  - DYSPEPSIA [None]
  - DYSPHONIA [None]
  - MOUTH ULCERATION [None]
  - NAUSEA [None]
  - ODYNOPHAGIA [None]
  - OROPHARYNGEAL PAIN [None]
  - PRODUCT QUALITY ISSUE [None]
